FAERS Safety Report 22859344 (Version 2)
Quarter: 2023Q4

REPORT INFORMATION
  Report Type: Report from Study
  Country: US (occurrence: US)
  Receive Date: 20230824
  Receipt Date: 20231104
  Transmission Date: 20240110
  Serious: No
  Sender: FDA-Public Use
  Company Number: US-002147023-NVSC2023US183641

PATIENT
  Sex: Female

DRUGS (3)
  1. KESIMPTA [Suspect]
     Active Substance: OFATUMUMAB
     Indication: Multiple sclerosis
     Dosage: UNK UNK, QW
     Route: 065
  2. KESIMPTA [Suspect]
     Active Substance: OFATUMUMAB
     Dosage: UNK UNK, QW
     Route: 065
  3. KESIMPTA [Suspect]
     Active Substance: OFATUMUMAB
     Dosage: UNK UNK, QW
     Route: 065

REACTIONS (5)
  - Influenza like illness [Unknown]
  - Fatigue [Unknown]
  - Chills [Unknown]
  - Pain [Unknown]
  - Somnolence [Unknown]
